FAERS Safety Report 11927392 (Version 12)
Quarter: 2019Q4

REPORT INFORMATION
  Report Type: Spontaneous
  Country: US (occurrence: US)
  Receive Date: 20160119
  Receipt Date: 20191206
  Transmission Date: 20200122
  Serious: Yes (Hospitalization)
  Sender: FDA-Public Use
  Company Number: US-ACTELION PHARMACEUTICALS US, INC.-A-NJ2014-107131

PATIENT
  Sex: Female
  Weight: 86.17 kg

DRUGS (8)
  1. VELETRI [Suspect]
     Active Substance: EPOPROSTENOL
     Indication: PULMONARY ARTERIAL HYPERTENSION
     Dosage: 27 NG/KG, PER MIN
     Route: 042
     Dates: start: 20140523
  2. VELETRI [Suspect]
     Active Substance: EPOPROSTENOL
     Dosage: 24 NG/KG, PER MIN
     Route: 042
  3. DILTIAZEM. [Concomitant]
     Active Substance: DILTIAZEM
  4. ADCIRCA [Concomitant]
     Active Substance: TADALAFIL
  5. VELETRI [Suspect]
     Active Substance: EPOPROSTENOL
     Dosage: 24 NG/KG, PER MIN
     Route: 042
  6. OXYGEN. [Concomitant]
     Active Substance: OXYGEN
  7. ASPIRIN. [Concomitant]
     Active Substance: ASPIRIN
  8. TADALAFIL. [Concomitant]
     Active Substance: TADALAFIL

REACTIONS (33)
  - Device dislocation [Unknown]
  - Catheter site pruritus [Unknown]
  - Oxygen therapy [Unknown]
  - Catheter site swelling [Unknown]
  - Catheter site erythema [Unknown]
  - Pain in extremity [Not Recovered/Not Resolved]
  - Pruritus [Unknown]
  - Urticaria [Unknown]
  - Hypersensitivity [Unknown]
  - Dyspnoea exertional [Not Recovered/Not Resolved]
  - Flushing [Unknown]
  - Eyelid oedema [Unknown]
  - Trismus [Unknown]
  - Nasopharyngitis [Not Recovered/Not Resolved]
  - Pain [Unknown]
  - Respiratory tract infection [Unknown]
  - Adverse event [Unknown]
  - Vascular device infection [Unknown]
  - Cellulitis [Recovered/Resolved]
  - Catheter site inflammation [Unknown]
  - Erythema [Unknown]
  - Diarrhoea [Not Recovered/Not Resolved]
  - Oxygen saturation decreased [Unknown]
  - Device battery issue [Unknown]
  - Catheter site warmth [Unknown]
  - Catheter site pain [Unknown]
  - Drug hypersensitivity [Unknown]
  - Rash [Not Recovered/Not Resolved]
  - Osteoporosis [Not Recovered/Not Resolved]
  - Cough [Unknown]
  - Catheter management [Recovered/Resolved]
  - Nausea [Unknown]
  - Headache [Not Recovered/Not Resolved]
